FAERS Safety Report 9133108 (Version 1)
Quarter: 2013Q1

REPORT INFORMATION
  Report Type: Spontaneous
  Country: HR (occurrence: HR)
  Receive Date: 20130301
  Receipt Date: 20130301
  Transmission Date: 20140127
  Serious: Yes (Other)
  Sender: FDA-Public Use
  Company Number: PHHY2013HR020134

PATIENT
  Age: 44 Year
  Sex: Female

DRUGS (1)
  1. KLAVOCIN [Suspect]
     Indication: PHARYNGITIS
     Dosage: 1 G, BID
     Route: 048
     Dates: start: 20130118, end: 20130118

REACTIONS (2)
  - Choking [Recovered/Resolved]
  - Rash generalised [Recovered/Resolved]
